FAERS Safety Report 19925948 (Version 1)
Quarter: 2021Q4

REPORT INFORMATION
  Report Type: Spontaneous
  Country: TN (occurrence: TN)
  Receive Date: 20211007
  Receipt Date: 20211007
  Transmission Date: 20220303
  Serious: Yes (Other)
  Sender: FDA-Public Use
  Company Number: TN-MERCK HEALTHCARE KGAA-9270006

PATIENT
  Sex: Female

DRUGS (2)
  1. REBIF [Suspect]
     Active Substance: INTERFERON BETA-1A
     Indication: Relapsing-remitting multiple sclerosis
     Route: 058
     Dates: start: 2008
  2. REBIF [Suspect]
     Active Substance: INTERFERON BETA-1A
     Route: 058
     Dates: start: 2009, end: 202109

REACTIONS (3)
  - Scleroderma [Unknown]
  - Injection site reaction [Unknown]
  - Influenza like illness [Unknown]

NARRATIVE: CASE EVENT DATE: 20210101
